FAERS Safety Report 7824705-5 (Version None)
Quarter: 2011Q4

REPORT INFORMATION
  Report Type: 
  Country: None (occurrence: None)
  Receive Date: 20111019
  Receipt Date: 20111012
  Transmission Date: 20120403
  Serious: Yes (Hospitalization, Other)
  Sender: FDA-Public Use
  Company Number: PHEH2010US03466

PATIENT
  Sex: Female

DRUGS (10)
  1. PERCOCET [Concomitant]
  2. NEURONTIN [Concomitant]
  3. OXYCONTIN [Concomitant]
  4. REVLIMID [Concomitant]
  5. ZOMETA [Suspect]
     Dates: start: 20050501, end: 20080601
  6. KEPPRA [Concomitant]
  7. EFFEXOR [Concomitant]
  8. FLEXERIL [Concomitant]
  9. HYDRALAZINE HCL [Concomitant]
  10. COREG [Concomitant]

REACTIONS (48)
  - INJURY [None]
  - ANXIETY [None]
  - INFECTION [None]
  - OEDEMA PERIPHERAL [None]
  - TRICUSPID VALVE INCOMPETENCE [None]
  - TIBIA FRACTURE [None]
  - OSTEOARTHRITIS [None]
  - LEFT VENTRICULAR HYPERTROPHY [None]
  - CONVULSION [None]
  - PLASMACYTOMA [None]
  - ANAEMIA [None]
  - MITRAL VALVE INCOMPETENCE [None]
  - HYPOTENSION [None]
  - DIZZINESS [None]
  - EXPOSED BONE IN JAW [None]
  - EMOTIONAL DISTRESS [None]
  - PULMONARY OEDEMA [None]
  - BONE NEOPLASM MALIGNANT [None]
  - CELLULITIS [None]
  - NEUROPATHY PERIPHERAL [None]
  - SYNCOPE [None]
  - DEHYDRATION [None]
  - PAIN [None]
  - PHYSICAL DISABILITY [None]
  - EMPHYSEMA [None]
  - HYPERTENSION [None]
  - OSTEONECROSIS OF JAW [None]
  - BONE LESION [None]
  - ATELECTASIS [None]
  - DYSPHAGIA [None]
  - SOMNOLENCE [None]
  - RENAL FAILURE CHRONIC [None]
  - PNEUMONIA [None]
  - DEFORMITY [None]
  - OSTEOLYSIS [None]
  - JAW FRACTURE [None]
  - HYPOXIA [None]
  - GASTROOESOPHAGEAL REFLUX DISEASE [None]
  - DIASTOLIC DYSFUNCTION [None]
  - LOSS OF CONSCIOUSNESS [None]
  - RIB FRACTURE [None]
  - OVERDOSE [None]
  - MULTIPLE MYELOMA [None]
  - URINARY TRACT INFECTION [None]
  - SYNOVIAL CYST [None]
  - CARDIOMYOPATHY [None]
  - DEEP VEIN THROMBOSIS [None]
  - BLOOD IMMUNOGLOBULIN G DECREASED [None]
